FAERS Safety Report 23136313 (Version 1)
Quarter: 2023Q4

REPORT INFORMATION
  Report Type: Report from Study
  Country: DE (occurrence: DE)
  Receive Date: 20231102
  Receipt Date: 20231102
  Transmission Date: 20240109
  Serious: Yes (Other)
  Sender: FDA-Public Use
  Company Number: None

PATIENT
  Sex: Female
  Weight: 55 kg

DRUGS (13)
  1. FULVESTRANT [Suspect]
     Active Substance: FULVESTRANT
     Indication: Breast cancer
     Dosage: 500 MG (500 MG DAY 1, 14, 28 AFTERWARDS EVERY 4 WEEKS)
     Route: 030
     Dates: start: 20211022
  2. FULVESTRANT [Suspect]
     Active Substance: FULVESTRANT
     Indication: Breast cancer
     Dosage: 400 MG (21 DAYS INTAKE, 7 DAYS PAUSE )
     Route: 048
     Dates: start: 20211217, end: 20220503
  3. ZOLEDRONIC ACID [Suspect]
     Active Substance: ZOLEDRONIC ACID
     Indication: Product used for unknown indication
     Dosage: 200 MG (21 DAYS INTAKE, 7 DAYS PAUSE)
     Dates: start: 20220504, end: 20220529
  4. LETROZOLE [Suspect]
     Active Substance: LETROZOLE
     Indication: Breast cancer
     Dosage: 2.5 MG, QD
     Route: 048
     Dates: start: 20180904, end: 20211017
  5. KISQALI [Suspect]
     Active Substance: RIBOCICLIB
     Indication: Breast cancer
     Dosage: 200 MG, 21 DAYS INTAKE, 7 DAYS PAUSE
     Route: 048
     Dates: start: 20220504, end: 20220529
  6. KISQALI [Suspect]
     Active Substance: RIBOCICLIB
     Indication: Breast cancer
     Dosage: 400 MG, 21 DAYS INTAKE, 7 DAYS PAUSE
     Route: 048
     Dates: start: 20211217, end: 20220503
  7. ZOLEDRONIC ACID [Suspect]
     Active Substance: ZOLEDRONIC ACID
     Indication: Product used for unknown indication
     Dosage: UNK
     Route: 065
  8. ZOLEDRONIC ACID [Suspect]
     Active Substance: ZOLEDRONIC ACID
     Indication: Product used for unknown indication
     Dosage: 4 MG, EVERY 4 WEEKS
     Route: 042
     Dates: start: 20180904
  9. LETROZOLE [Suspect]
     Active Substance: LETROZOLE
     Indication: Breast cancer
     Dosage: 400 MG (21 DAYS INTAKE, THEN 14 DAYS PAUSE )
     Route: 048
     Dates: start: 20190319
  10. KISQALI [Suspect]
     Active Substance: RIBOCICLIB
     Indication: Breast cancer
     Dosage: 200 MG, 21 DAYS INTAKE, 7 DAYS PAUSE
     Route: 048
     Dates: start: 20230601
  11. KISQALI [Suspect]
     Active Substance: RIBOCICLIB
     Indication: Breast cancer
     Dosage: 400 MG, 21 DAYS INTAKE, 7 DAYS PAUSE
     Route: 048
     Dates: start: 20230530, end: 20230531
  12. KISQALI [Suspect]
     Active Substance: RIBOCICLIB
     Indication: Breast cancer
     Dosage: 400 MG, 21 DAYS INTAKE, THEN 14 DAYS PAUSE
     Route: 048
     Dates: start: 20190319, end: 20211017
  13. KISQALI [Suspect]
     Active Substance: RIBOCICLIB
     Indication: Breast cancer
     Dosage: 600 MG, 21 DAYS INTAKE, THEN 7 DAYS PAUSE
     Route: 048
     Dates: start: 20180904, end: 20190318

REACTIONS (10)
  - Mucosal haemorrhage [Recovered/Resolved]
  - Musculoskeletal pain [Recovered/Resolved]
  - Alopecia [Not Recovered/Not Resolved]
  - Muscle strain [Recovered/Resolved]
  - Fungal infection [Recovered/Resolved]
  - Neutropenia [Not Recovered/Not Resolved]
  - Cystitis [Recovered/Resolved]
  - Muscle tightness [Recovered/Resolved]
  - Conjunctivitis [Recovered/Resolved]
  - Bone pain [Recovered/Resolved]

NARRATIVE: CASE EVENT DATE: 20180904
